FAERS Safety Report 20721338 (Version 6)
Quarter: 2023Q4

REPORT INFORMATION
  Report Type: Spontaneous
  Country: AU (occurrence: AU)
  Receive Date: 20220418
  Receipt Date: 20231017
  Transmission Date: 20240109
  Serious: Yes (Hospitalization, Other)
  Sender: FDA-Public Use
  Company Number: AU-GLAXOSMITHKLINE-AU2022APC046981

PATIENT

DRUGS (4)
  1. AMBRISENTAN [Suspect]
     Active Substance: AMBRISENTAN
     Indication: Pulmonary arterial hypertension
     Dosage: 5 MG, QD
     Route: 048
  2. FLOLAN [Suspect]
     Active Substance: EPOPROSTENOL SODIUM
     Indication: Pulmonary arterial hypertension
     Dosage: 1.5 MG
     Route: 042
  3. TADALAFIL [Suspect]
     Active Substance: TADALAFIL
     Indication: Product used for unknown indication
     Dosage: 2 DF, QD 40 MG
     Route: 048
  4. TADALAFIL [Suspect]
     Active Substance: TADALAFIL
     Dosage: 1 DF, BID
     Route: 048

REACTIONS (8)
  - Fluid intake reduced [Unknown]
  - Product use issue [Unknown]
  - Catheter management [Unknown]
  - Transient ischaemic attack [Unknown]
  - Cough [Unknown]
  - COVID-19 [Unknown]
  - Product complaint [Unknown]
  - Dyspnoea [Unknown]
